FAERS Safety Report 8372556-8 (Version None)
Quarter: 2012Q2

REPORT INFORMATION
  Report Type: 
  Country: None (occurrence: None)
  Receive Date: 20120521
  Receipt Date: 20120515
  Transmission Date: 20120825
  Serious: Yes (Hospitalization, Other)
  Sender: FDA-Public Use
  Company Number: PHHY2012MX032033

PATIENT
  Sex: Female

DRUGS (4)
  1. GLYBURIDE AND METFORMIN HYDROCHLORIDE [Concomitant]
     Dosage: 3 DF (5/500 MG), EVERY 24 HOURS
  2. METFORMIN HCL [Concomitant]
     Dosage: 2 TABLETS PER DAY
  3. EXFORGE HCT [Suspect]
     Dosage: 2 TABLETS (160/5/12.5 MG) PER DAY
     Dates: start: 20120327
  4. EXFORGE HCT [Suspect]
     Indication: HYPERTENSION
     Dosage: 1 TABLET (160/5/12.5 MG) PER DAY
     Dates: start: 20120320

REACTIONS (6)
  - EYE HAEMORRHAGE [None]
  - EYE INFLAMMATION [None]
  - VISUAL IMPAIRMENT [None]
  - HYPERTENSION [None]
  - EMOTIONAL DISORDER [None]
  - CATARACT [None]
